FAERS Safety Report 5076989-7 (Version None)
Quarter: 2006Q3

REPORT INFORMATION
  Report Type: 
  Country: None (occurrence: None)
  Receive Date: 20060810
  Receipt Date: 20060727
  Transmission Date: 20061208
  Serious: Yes (Hospitalization)
  Sender: FDA-Public Use
  Company Number: 2006CG01285

PATIENT
  Age: 22 Year
  Sex: Male

DRUGS (7)
  1. NEXIUM [Suspect]
     Route: 048
  2. PROGRAF [Suspect]
     Route: 048
     Dates: start: 20000101
  3. EPITOMAX [Suspect]
     Route: 048
  4. NORMISON [Suspect]
     Route: 048
  5. IMUREL [Suspect]
     Route: 048
     Dates: start: 20000101
  6. PRAVASTATIN [Suspect]
     Route: 048
  7. CHRONADALATE LP [Concomitant]

REACTIONS (3)
  - AREFLEXIA [None]
  - DYSAESTHESIA [None]
  - PARAESTHESIA [None]
